FAERS Safety Report 12201425 (Version 1)
Quarter: 2016Q1

REPORT INFORMATION
  Report Type: Spontaneous
  Country: US (occurrence: US)
  Receive Date: 20160322
  Receipt Date: 20160322
  Transmission Date: 20160526
  Serious: No
  Sender: FDA-Public Use
  Company Number: US-SA-2015SA032254

PATIENT
  Age: 52 Year
  Sex: Male

DRUGS (1)
  1. NASACORT ALLERGY 24HR [Suspect]
     Active Substance: TRIAMCINOLONE ACETONIDE
     Indication: MULTIPLE ALLERGIES
     Dosage: 2 SPRAYS EA NARES?START DATE: 7DAYS AGO?END DATE: ON 7TH DAY
     Route: 065

REACTIONS (1)
  - Drug ineffective [Unknown]
